FAERS Safety Report 5369683-6 (Version None)
Quarter: 2007Q2

REPORT INFORMATION
  Report Type: 
  Country: None (occurrence: None)
  Receive Date: 20070625
  Receipt Date: 20070613
  Transmission Date: 20071010
  Serious: Yes (Other)
  Sender: FDA-Public Use
  Company Number: EC-PFIZER INC-2007048456

PATIENT
  Age: 55 Year
  Sex: Female

DRUGS (2)
  1. AZITHROMYCIN [Suspect]
     Indication: SINUSITIS
     Route: 048
  2. WARFARIN SODIUM [Concomitant]
     Indication: CARDIAC VALVE DISEASE
     Route: 048

REACTIONS (1)
  - ECCHYMOSIS [None]
